FAERS Safety Report 9604496 (Version 2)
Quarter: 2013Q4

REPORT INFORMATION
  Report Type: Spontaneous
  Country: JP (occurrence: JP)
  Receive Date: 20131008
  Receipt Date: 20131118
  Transmission Date: 20140711
  Serious: Yes (Other)
  Sender: FDA-Public Use
  Company Number: JP-ROCHE-1282297

PATIENT
  Sex: Female

DRUGS (2)
  1. HERCEPTIN [Suspect]
     Indication: BREAST CANCER
     Dosage: LAST DOSE PRIOR TO EVENT: 20/SEP/2013?DOSAGE IS UNCERTAIN.
     Route: 041
     Dates: start: 20130919
  2. PERJETA [Suspect]
     Indication: BREAST CANCER
     Dosage: LAST DOSE PRIOR TO EVENT: 20/SEP/2013?420 MG/14ML
     Route: 041
     Dates: start: 20130919

REACTIONS (1)
  - Infusion related reaction [Recovering/Resolving]
